FAERS Safety Report 6842556-5 (Version None)
Quarter: 2010Q3

REPORT INFORMATION
  Report Type: 
  Country: None (occurrence: None)
  Receive Date: 20100714
  Receipt Date: 20070730
  Transmission Date: 20110219
  Serious: No
  Sender: FDA-Public Use
  Company Number: US-PFIZER INC-2007064849

PATIENT
  Sex: Female

DRUGS (10)
  1. CHANTIX [Suspect]
     Indication: SMOKING CESSATION THERAPY
     Route: 048
     Dates: start: 20070401
  2. LITHOBID [Concomitant]
  3. ZOLOFT [Concomitant]
  4. RISPERDAL [Concomitant]
  5. ACIPHEX [Concomitant]
  6. COUGH AND COLD PREPARATIONS [Concomitant]
  7. DECONGESTANT [Concomitant]
  8. VALIUM [Concomitant]
  9. TRAZODONE HYDROCHLORIDE [Concomitant]
  10. TEGRETOL [Concomitant]

REACTIONS (1)
  - INSOMNIA [None]
